FAERS Safety Report 4911087-1 (Version None)
Quarter: 2006Q1

REPORT INFORMATION
  Report Type: 
  Country: None (occurrence: None)
  Receive Date: 20060209
  Receipt Date: 20060127
  Transmission Date: 20060701
  Serious: Yes (Hospitalization)
  Sender: FDA-Public Use
  Company Number: 2006015640

PATIENT
  Sex: 0

DRUGS (2)
  1. MEDROL [Suspect]
     Indication: ILL-DEFINED DISORDER
  2. LEVOTHYROXINE SODIUM [Suspect]
     Indication: ILL-DEFINED DISORDER

REACTIONS (10)
  - ABORTION [None]
  - AMYOTROPHY [None]
  - CHROMOSOME ABNORMALITY [None]
  - CONGENITAL MULTIPLEX ARTHROGRYPOSIS [None]
  - CONUS MEDULLARIS SYNDROME [None]
  - FACIAL DYSMORPHISM [None]
  - HYPOTHYROIDISM [None]
  - MATERNAL DRUGS AFFECTING FOETUS [None]
  - TALIPES [None]
  - TERATOMA [None]
